FAERS Safety Report 7866866-8 (Version None)
Quarter: 2011Q4

REPORT INFORMATION
  Report Type: 
  Country: None (occurrence: None)
  Receive Date: 20111028
  Receipt Date: 20111021
  Transmission Date: 20120403
  Serious: Yes (Other)
  Sender: FDA-Public Use
  Company Number: US-ABBOTT-11P-163-0867972-00

PATIENT
  Age: 43 Year
  Sex: Male

DRUGS (13)
  1. LISINOPRIL [Concomitant]
     Indication: HYPERTENSION
     Route: 048
  2. VITAMIN D [Concomitant]
     Indication: VITAMIN SUPPLEMENTATION
     Route: 048
  3. HUMIRA [Suspect]
     Indication: PSORIASIS
     Route: 058
  4. HYDROCHLOROTHIAZIDE [Concomitant]
     Indication: HYPERTENSION
     Route: 048
  5. SIMVASTATIN [Concomitant]
     Indication: BLOOD CHOLESTEROL INCREASED
     Route: 048
  6. PRISTIQ [Concomitant]
     Indication: PRODUCT USED FOR UNKNOWN INDICATION
     Dosage: TAKEN AT BEDTIME
     Route: 048
  7. LAMOTRIGINE [Concomitant]
     Indication: PRODUCT USED FOR UNKNOWN INDICATION
     Dosage: TAKEN AT BEDTIME
     Route: 048
  8. PROVENTIL [Concomitant]
     Indication: ASTHMA
  9. LIDOCAINE [Concomitant]
     Indication: PRODUCT USED FOR UNKNOWN INDICATION
  10. HUMIRA [Suspect]
     Indication: PSORIATIC ARTHROPATHY
     Route: 058
     Dates: start: 20070101
  11. OXYCODONE HCL [Concomitant]
     Indication: BREAKTHROUGH PAIN
     Dosage: 1-2 TABS PRN
     Route: 048
  12. OXYCONTIN [Concomitant]
     Indication: PAIN
     Route: 048
  13. BACLOFEN [Concomitant]
     Indication: MUSCLE RELAXANT THERAPY
     Route: 048

REACTIONS (5)
  - RED BLOOD CELL SEDIMENTATION RATE INCREASED [None]
  - INFLAMMATION [None]
  - BASEDOW'S DISEASE [None]
  - COMPLEX PARTIAL SEIZURES [None]
  - PSORIASIS [None]
